FAERS Safety Report 7972558-7 (Version None)
Quarter: 2011Q4

REPORT INFORMATION
  Report Type: 
  Country: None (occurrence: None)
  Receive Date: 20111213
  Receipt Date: 20111202
  Transmission Date: 20120403
  Serious: Yes (Other)
  Sender: FDA-Public Use
  Company Number: US-BAYER-2011-007540

PATIENT
  Age: 22 Year
  Sex: Female

DRUGS (3)
  1. YAZ [Suspect]
     Indication: CONTRACEPTION
     Dosage: UNK
     Dates: start: 20080801
  2. SEASONIQUE [Concomitant]
     Dosage: UNK
     Dates: start: 20080101, end: 20100101
  3. PROTONIX [Concomitant]
     Dosage: UNK
     Dates: start: 20080901

REACTIONS (7)
  - VOMITING [None]
  - EMOTIONAL DISTRESS [None]
  - PAIN [None]
  - GALLBLADDER DISORDER [None]
  - INJURY [None]
  - BILIARY DYSKINESIA [None]
  - CHEST PAIN [None]
